FAERS Safety Report 20176447 (Version 1)
Quarter: 2021Q4

REPORT INFORMATION
  Report Type: Spontaneous
  Country: US (occurrence: None)
  Receive Date: 20211210
  Receipt Date: 20211210
  Transmission Date: 20220303
  Serious: Yes (Disabling)
  Sender: FDA-Public Use
  Company Number: None

PATIENT
  Age: 74 Year
  Sex: Female
  Weight: 52.6 kg

DRUGS (1)
  1. NIVOLUMAB [Suspect]
     Active Substance: NIVOLUMAB
     Indication: Squamous cell carcinoma of lung
     Dosage: OTHER FREQUENCY : ONCE;?
     Route: 042
     Dates: start: 20211124, end: 20211124

REACTIONS (1)
  - Blister [None]

NARRATIVE: CASE EVENT DATE: 20211126
